FAERS Safety Report 8804724 (Version 1)
Quarter: 2012Q4

REPORT INFORMATION
  Report Type: 
  Country: BR (occurrence: BR)
  Receive Date: 20120924
  Receipt Date: 20120924
  Transmission Date: 20130627
  Serious: Yes (Hospitalization, Other)
  Sender: FDA-Public Use
  Company Number: BR-ABBOTT-12P-020-0979988-00

PATIENT
  Age: 52 None
  Sex: Female
  Weight: 95 kg

DRUGS (14)
  1. SYNTHROID [Suspect]
     Indication: HYPOTHYROIDISM
     Dosage: 1 tablet daily
     Route: 048
  2. NOCTAL [Concomitant]
     Indication: ANXIETY
     Route: 048
     Dates: start: 2009, end: 201209
  3. NOCTAL [Concomitant]
     Indication: INSOMNIA
  4. FRONTAL [Concomitant]
     Indication: ANXIETY
     Dosage: 1 tablet daily
     Route: 048
     Dates: start: 20000101, end: 2007
  5. FRONTAL [Concomitant]
     Indication: PANIC DISORDER
  6. DOBUTAMINE HYDROCHLORIDE [Concomitant]
     Indication: EPIGASTRIC DISCOMFORT
     Dosage: 1 tablet daily
     Route: 048
     Dates: start: 2010
  7. DOBUTAMINE HYDROCHLORIDE [Concomitant]
     Indication: PROPHYLAXIS
  8. NISTAPAZINE [Concomitant]
     Indication: ANTIDEPRESSANT THERAPY
     Dosage: 1 tablet daily
     Route: 048
     Dates: start: 2009
  9. PANTOPRAZOLE [Concomitant]
     Indication: EPIGASTRIC DISCOMFORT
     Dosage: 1 tablet daily
     Route: 048
     Dates: start: 1999
  10. PANTOFETONA [Concomitant]
     Indication: NAUSEA
     Dosage: 1 tablet daily
     Route: 048
     Dates: start: 2011
  11. VITAMIN B [Concomitant]
     Indication: METABOLIC DISORDER
     Route: 048
     Dates: start: 20000501
  12. CENTRUM [Concomitant]
     Indication: VITAMIN SUPPLEMENTATION
     Route: 048
     Dates: start: 2010
  13. CENTRUM [Concomitant]
     Indication: FATIGUE
  14. RIVOTRIL [Concomitant]
     Indication: ANXIOLYTIC THERAPY
     Dosage: At night
     Route: 048
     Dates: start: 2011

REACTIONS (13)
  - Weight increased [Unknown]
  - Fall [Unknown]
  - Dizziness [Unknown]
  - Osteitis [Unknown]
  - Anaemia [Unknown]
  - Weight increased [Not Recovered/Not Resolved]
  - Vomiting [Not Recovered/Not Resolved]
  - Unevaluable event [Not Recovered/Not Resolved]
  - Decreased appetite [Not Recovered/Not Resolved]
  - Dizziness [Not Recovered/Not Resolved]
  - Hypertension [Not Recovered/Not Resolved]
  - Unevaluable event [Unknown]
  - Panic disorder [Unknown]
